FAERS Safety Report 26100931 (Version 1)
Quarter: 2025Q4

REPORT INFORMATION
  Report Type: Report from Study
  Country: US (occurrence: US)
  Receive Date: 20251128
  Receipt Date: 20251128
  Transmission Date: 20260117
  Serious: Yes (Other)
  Sender: EMD SERONO INC
  Company Number: US-Merck Healthcare KGaA-2025059668

PATIENT
  Sex: Female

DRUGS (1)
  1. TEPMETKO [Suspect]
     Active Substance: TEPOTINIB HYDROCHLORIDE
     Indication: Neoplasm malignant
     Dates: start: 20250815

REACTIONS (4)
  - Renal impairment [Unknown]
  - Pain in extremity [Unknown]
  - White blood cell count decreased [Unknown]
  - Oedema peripheral [Recovering/Resolving]
